FAERS Safety Report 12677317 (Version 2)
Quarter: 2016Q3

REPORT INFORMATION
  Report Type: Spontaneous
  Country: JP (occurrence: JP)
  Receive Date: 20160823
  Receipt Date: 20160901
  Transmission Date: 20161109
  Serious: Yes (Hospitalization, Other)
  Sender: FDA-Public Use
  Company Number: JP-PFIZER INC-2016391168

PATIENT
  Age: 56 Year
  Sex: Female

DRUGS (12)
  1. JANUVIA [Concomitant]
     Active Substance: SITAGLIPTIN PHOSPHATE
     Dosage: 50 MG, 1X/DAY
     Route: 048
     Dates: end: 20131228
  2. LIPITOR [Suspect]
     Active Substance: ATORVASTATIN CALCIUM
     Indication: DYSLIPIDAEMIA
     Dosage: 10 MG, 1X/DAY
     Route: 048
     Dates: start: 201312, end: 20131228
  3. DIART [Suspect]
     Active Substance: AZOSEMIDE
     Dosage: 30 MG, 1X/DAY
     Route: 048
     Dates: end: 20131228
  4. BENET [Concomitant]
     Active Substance: RISEDRONATE SODIUM
     Dosage: 2.5 MG, 1X/DAY
     Route: 048
  5. PREDONINE [Concomitant]
     Active Substance: PREDNISOLONE\PREDNISOLONE ACETATE\PREDNISOLONE SODIUM SUCCINATE
     Dosage: 2.5 MG, 1X/DAY
     Route: 048
  6. ZANTAC [Concomitant]
     Active Substance: RANITIDINE HYDROCHLORIDE
     Dosage: 300 MG, 1X/DAY
     Route: 048
  7. GASTROM [Concomitant]
     Active Substance: ECABET
     Dosage: 3 G, 1X/DAY
     Route: 048
  8. PROPACIL [Concomitant]
     Dosage: 200 MG, 1X/DAY
     Route: 048
     Dates: end: 20131228
  9. OLMETEC [Concomitant]
     Active Substance: OLMESARTAN MEDOXOMIL
     Dosage: 5 MG, 1X/DAY
     Route: 048
  10. BASEN /01290601/ [Concomitant]
     Active Substance: VOGLIBOSE
     Dosage: 0.9 MG, 1X/DAY
     Route: 048
  11. ROHYPNOL [Concomitant]
     Active Substance: FLUNITRAZEPAM
     Dosage: 1 MG, 1X/DAY
     Route: 048
  12. AMARYL [Concomitant]
     Active Substance: GLIMEPIRIDE
     Dosage: 0.5 MG, 1X/DAY
     Route: 048

REACTIONS (1)
  - Interstitial lung disease [Recovering/Resolving]

NARRATIVE: CASE EVENT DATE: 20131228
